FAERS Safety Report 21475162 (Version 1)
Quarter: 2022Q4

REPORT INFORMATION
  Report Type: Spontaneous
  Country: FR (occurrence: FR)
  Receive Date: 20221019
  Receipt Date: 20221019
  Transmission Date: 20230113
  Serious: Yes (Life-Threatening, Other)
  Sender: FDA-Public Use
  Company Number: FR-RENAUDINFR-2022000986

PATIENT
  Age: 30 Year
  Sex: Female
  Weight: 60 kg

DRUGS (9)
  1. EPHEDRINE [Suspect]
     Active Substance: EPHEDRINE
     Indication: Hypotension
     Dosage: UNKNOWN
     Route: 042
     Dates: start: 20220912, end: 20220912
  2. MORPHINE [Suspect]
     Active Substance: MORPHINE
     Indication: Spinal anaesthesia
     Dosage: 100 MICROGRAM
     Route: 065
     Dates: start: 20220912, end: 20220912
  3. MORPHINE [Suspect]
     Active Substance: MORPHINE
     Indication: Caesarean section
  4. SUFENTA [Suspect]
     Active Substance: SUFENTANIL CITRATE
     Indication: Spinal anaesthesia
     Dosage: 2.5 MICROGRAM
     Route: 065
     Dates: start: 20220912, end: 20220912
  5. SUFENTA [Suspect]
     Active Substance: SUFENTANIL CITRATE
     Indication: Caesarean section
  6. PHENYLEPHRINE HYDROCHLORIDE [Suspect]
     Active Substance: PHENYLEPHRINE HYDROCHLORIDE
     Indication: Hypotension
     Dosage: 50 GAMMA
     Route: 042
     Dates: start: 20220912, end: 20220912
  7. PHENYLEPHRINE HYDROCHLORIDE [Suspect]
     Active Substance: PHENYLEPHRINE HYDROCHLORIDE
     Dosage: UNKNOWN
     Route: 042
     Dates: start: 20220912, end: 20220912
  8. BUPIVACAINE [Suspect]
     Active Substance: BUPIVACAINE
     Indication: Spinal anaesthesia
     Dosage: 10 MILLIGRAM
     Route: 065
     Dates: start: 20220912, end: 20220912
  9. BUPIVACAINE [Suspect]
     Active Substance: BUPIVACAINE
     Indication: Caesarean section

REACTIONS (6)
  - Bradycardia [Recovered/Resolved]
  - Chest discomfort [Recovered/Resolved]
  - Maternal exposure during delivery [Unknown]
  - Hypertension [Recovered/Resolved]
  - Headache [Recovered/Resolved]
  - Ventricular extrasystoles [Recovered/Resolved]

NARRATIVE: CASE EVENT DATE: 20220912
